FAERS Safety Report 8235462-5 (Version None)
Quarter: 2012Q1

REPORT INFORMATION
  Report Type: 
  Country: None (occurrence: None)
  Receive Date: 20120303
  Receipt Date: 20120307
  Transmission Date: 20120608
  Serious: Yes (Hospitalization)
  Sender: FDA-Public Use
  Company Number: 2012HGS-003360

PATIENT
  Age: 66 Year
  Sex: Female
  Weight: 50.8029 kg

DRUGS (4)
  1. PREDNISONE [Concomitant]
  2. PLAQUENIL [Concomitant]
  3. BENLYSTA [Suspect]
  4. BENLYSTA [Suspect]
     Indication: SYSTEMIC LUPUS ERYTHEMATOSUS
     Dosage: 520 MG, 1 IN 4 M, INTRAVENOUS DRIP
     Route: 041
     Dates: start: 20110708, end: 20110721

REACTIONS (2)
  - PYELONEPHRITIS [None]
  - ESCHERICHIA BACTERAEMIA [None]
